FAERS Safety Report 5398665-3 (Version None)
Quarter: 2007Q3

REPORT INFORMATION
  Report Type: 
  Country: None (occurrence: None)
  Receive Date: 20070726
  Receipt Date: 20070215
  Transmission Date: 20080115
  Serious: No
  Sender: FDA-Public Use
  Company Number: US-AMGEN-KDL205300

PATIENT
  Sex: Male
  Weight: 72.6 kg

DRUGS (7)
  1. PROCRIT [Suspect]
     Indication: RENAL FAILURE CHRONIC
     Dates: start: 20061026
  2. TERAZOSIN HYDROCHLORIDE [Concomitant]
  3. FUROSEMIDE [Concomitant]
  4. GLYBURIDE [Concomitant]
  5. ASPIRIN [Concomitant]
  6. VITAMIN B-12 [Concomitant]
  7. VIDAZA [Concomitant]

REACTIONS (3)
  - BLOOD FOLATE INCREASED [None]
  - THERAPEUTIC RESPONSE DECREASED [None]
  - VITAMIN B12 INCREASED [None]
